FAERS Safety Report 14745318 (Version 7)
Quarter: 2019Q1

REPORT INFORMATION
  Report Type: Report from Study
  Country: FR (occurrence: FR)
  Receive Date: 20180411
  Receipt Date: 20190109
  Transmission Date: 20190417
  Serious: Yes (Hospitalization)
  Sender: FDA-Public Use
  Company Number: FR-ROCHE-1952828

PATIENT
  Age: 58 Year
  Sex: Female
  Weight: 76.2 kg

DRUGS (83)
  1. BISOCE [Concomitant]
     Active Substance: BISOPROLOL
     Route: 048
     Dates: start: 20171027, end: 201802
  2. FUROSEMIDE. [Concomitant]
     Active Substance: FUROSEMIDE
     Route: 048
     Dates: start: 201802, end: 201802
  3. CORTANCYL [Concomitant]
     Active Substance: PREDNISONE
     Indication: LUPUS NEPHRITIS
     Route: 048
     Dates: start: 20170217
  4. UVEDOSE [Concomitant]
     Active Substance: CHOLECALCIFEROL
     Dosage: 1 AMPULE
     Route: 048
     Dates: start: 20171027
  5. SULFAMETHOXAZOLE/TRIMETHOPRIM [Concomitant]
     Active Substance: SULFAMETHOXAZOLE\TRIMETHOPRIM
     Route: 048
     Dates: start: 20170217, end: 20170810
  6. NOVORAPID [Concomitant]
     Active Substance: INSULIN ASPART
     Route: 058
     Dates: start: 20161121, end: 20170510
  7. NOVORAPID [Concomitant]
     Active Substance: INSULIN ASPART
     Route: 058
     Dates: start: 20170608, end: 20170716
  8. LEVEMIR [Concomitant]
     Active Substance: INSULIN DETEMIR
     Route: 058
     Dates: start: 20161121
  9. KARDEGIC [Concomitant]
     Active Substance: ASPIRIN DL-LYSINE
     Route: 048
     Dates: start: 20161121
  10. BISOCE [Concomitant]
     Active Substance: BISOPROLOL
     Route: 048
     Dates: start: 201802
  11. VALACICLOVIR [Concomitant]
     Active Substance: VALACYCLOVIR HYDROCHLORIDE
     Route: 048
     Dates: start: 20180112, end: 20180120
  12. VISMED [Concomitant]
     Active Substance: HYALURONATE SODIUM
     Route: 047
     Dates: start: 20170728
  13. AZATHIOPRINE. [Concomitant]
     Active Substance: AZATHIOPRINE
     Indication: LUPUS NEPHRITIS
     Route: 048
     Dates: start: 20171110
  14. TAMIFLU [Concomitant]
     Active Substance: OSELTAMIVIR PHOSPHATE
     Route: 048
     Dates: start: 20180104, end: 20180108
  15. VANCOMYCINE [Concomitant]
     Active Substance: VANCOMYCIN
     Route: 048
     Dates: start: 20180108, end: 20180108
  16. HYDROCORTISONE. [Concomitant]
     Active Substance: HYDROCORTISONE
     Route: 048
     Dates: start: 20171130, end: 20180126
  17. ALLOPURINOL. [Concomitant]
     Active Substance: ALLOPURINOL
     Route: 048
     Dates: start: 20161121, end: 201707
  18. TAHOR [Concomitant]
     Active Substance: ATORVASTATIN CALCIUM
     Route: 048
     Dates: start: 2015
  19. FUROSEMIDE. [Concomitant]
     Active Substance: FUROSEMIDE
     Route: 048
     Dates: start: 20180127, end: 201802
  20. TIORFAN [Concomitant]
     Active Substance: RACECADOTRIL
     Route: 048
     Dates: start: 20170306, end: 201705
  21. SODIUM BICARBONATE. [Concomitant]
     Active Substance: SODIUM BICARBONATE
     Route: 048
     Dates: start: 201705, end: 20170716
  22. SODIUM BICARBONATE. [Concomitant]
     Active Substance: SODIUM BICARBONATE
     Route: 048
     Dates: start: 20171027, end: 201712
  23. VALACICLOVIR [Concomitant]
     Active Substance: VALACYCLOVIR HYDROCHLORIDE
     Route: 048
     Dates: start: 20170508, end: 20170513
  24. VALACICLOVIR [Concomitant]
     Active Substance: VALACYCLOVIR HYDROCHLORIDE
     Route: 048
     Dates: start: 20180121, end: 20180323
  25. BIOCIDAN [Concomitant]
     Dosage: TOTAL DAILY DOSE: 3 OTHER
     Route: 047
     Dates: start: 201705, end: 20170518
  26. FUCIDINE [Concomitant]
     Dosage: TOTAL DAILY DOSE: 2 OTHER
     Route: 062
     Dates: start: 201705, end: 20170518
  27. LASIX [Concomitant]
     Active Substance: FUROSEMIDE
     Route: 048
     Dates: start: 20171027, end: 201801
  28. INVANZ [Concomitant]
     Active Substance: ERTAPENEM SODIUM
     Route: 042
     Dates: start: 20171126, end: 20171130
  29. SALBUTAMOL [Concomitant]
     Active Substance: ALBUTEROL
     Dosage: 1 INHALATION DAILY
     Route: 050
     Dates: start: 20180108, end: 20180108
  30. BRICANYL [Concomitant]
     Active Substance: TERBUTALINE SULFATE
     Dosage: 3 INHALATION DAILY
     Route: 050
     Dates: start: 20180104, end: 201801
  31. SPIRAMYCINE [Concomitant]
     Active Substance: SPIRAMYCIN
     Dosage: 9 TABLETS
     Route: 048
     Dates: start: 20180126, end: 20180126
  32. ESIDREX [Concomitant]
     Active Substance: HYDROCHLOROTHIAZIDE
     Route: 048
     Dates: start: 20161121
  33. FUROSEMIDE. [Concomitant]
     Active Substance: FUROSEMIDE
     Route: 048
     Dates: start: 20180126, end: 20180126
  34. FUROSEMIDE. [Concomitant]
     Active Substance: FUROSEMIDE
     Route: 048
     Dates: start: 201802, end: 20180308
  35. CORTANCYL [Concomitant]
     Active Substance: PREDNISONE
     Route: 048
  36. VALSARTAN. [Concomitant]
     Active Substance: VALSARTAN
     Route: 048
     Dates: start: 20171027
  37. TAZOBACTAM/PIPERACILLIN [Concomitant]
     Active Substance: PIPERACILLIN SODIUM\TAZOBACTAM SODIUM
     Dosage: DAILY DOSE 3 OTHER
     Route: 042
     Dates: start: 20180124, end: 20180126
  38. TAMIFLU [Concomitant]
     Active Substance: OSELTAMIVIR PHOSPHATE
     Dosage: 2 CAPSULES DAILY
     Route: 048
     Dates: start: 20180126, end: 20180126
  39. BLOOD [Concomitant]
     Active Substance: WHOLE BLOOD
     Dosage: 1 UNIT DAILY
     Route: 042
     Dates: start: 20180108, end: 20180108
  40. HYDROCORTISONE. [Concomitant]
     Active Substance: HYDROCORTISONE
     Indication: LUPUS NEPHRITIS
     Route: 048
     Dates: start: 20180127, end: 20180127
  41. BISOCE [Concomitant]
     Active Substance: BISOPROLOL
     Route: 048
     Dates: start: 20170826, end: 20171026
  42. HYDROCHLOROTHIAZIDE/VALSARTAN [Concomitant]
     Active Substance: HYDROCHLOROTHIAZIDE\VALSARTAN
     Route: 048
     Dates: start: 20161212
  43. CORTANCYL [Concomitant]
     Active Substance: PREDNISONE
     Route: 048
     Dates: start: 20170428, end: 20170509
  44. CORTANCYL [Concomitant]
     Active Substance: PREDNISONE
     Route: 048
     Dates: start: 20170510, end: 20170522
  45. CORTANCYL [Concomitant]
     Active Substance: PREDNISONE
     Route: 048
     Dates: start: 20170810, end: 20171210
  46. CEPHALEXIN. [Concomitant]
     Active Substance: CEPHALEXIN
     Route: 048
     Dates: start: 201705, end: 20170520
  47. AUGMENTIN [Concomitant]
     Active Substance: AMOXICILLIN\CLAVULANATE POTASSIUM
     Route: 048
     Dates: start: 20170515, end: 20170530
  48. TAZOBACTAM/PIPERACILLIN [Concomitant]
     Active Substance: PIPERACILLIN SODIUM\TAZOBACTAM SODIUM
     Route: 042
     Dates: start: 20180126, end: 20180126
  49. ACICLOVIR [Concomitant]
     Active Substance: ACYCLOVIR
     Route: 042
     Dates: start: 20180111, end: 20180112
  50. PARACETAMOL [Concomitant]
     Active Substance: ACETAMINOPHEN
     Route: 042
     Dates: start: 20180127, end: 20180130
  51. HYDROCORTISONE. [Concomitant]
     Active Substance: HYDROCORTISONE
     Route: 048
     Dates: start: 20180127, end: 20180129
  52. CEFTRIAXONE. [Concomitant]
     Active Substance: CEFTRIAXONE
     Route: 042
     Dates: start: 20180127, end: 20180129
  53. OXYCODONE [Concomitant]
     Active Substance: OXYCODONE
     Route: 048
     Dates: start: 201802, end: 201803
  54. OXYNORMORO [Concomitant]
     Active Substance: OXYCODONE HYDROCHLORIDE
     Route: 048
     Dates: start: 201802, end: 201803
  55. PLACEBO [Suspect]
     Active Substance: UNSPECIFIED INGREDIENT
     Indication: LUPUS NEPHRITIS
     Dosage: AT 12: 35 MOST RECENT DOSE : 06/MAR/2017?DATE OF MOST RECENT DOSE OF BLINDED OBINUTUZUMAB PRIOR TO A
     Route: 042
     Dates: start: 20170217
  56. NOVORAPID [Concomitant]
     Active Substance: INSULIN ASPART
     Route: 058
     Dates: start: 20171027
  57. OMEPRAZOLE. [Concomitant]
     Active Substance: OMEPRAZOLE
     Route: 048
     Dates: start: 2012, end: 201710
  58. CHOLURSO [Concomitant]
     Active Substance: URSODIOL
     Route: 048
     Dates: start: 2009, end: 20180331
  59. ACTONEL [Concomitant]
     Active Substance: RISEDRONATE SODIUM
     Route: 048
     Dates: start: 20170217, end: 201803
  60. VALACICLOVIR [Concomitant]
     Active Substance: VALACYCLOVIR HYDROCHLORIDE
     Route: 048
     Dates: start: 201802, end: 20180216
  61. MUCOMYST [Concomitant]
     Active Substance: ACETYLCYSTEINE
     Route: 048
     Dates: start: 201705, end: 20170520
  62. TAZOBACTAM/PIPERACILLIN [Concomitant]
     Active Substance: PIPERACILLIN SODIUM\TAZOBACTAM SODIUM
     Dosage: 3 UNITS DAILY
     Route: 042
     Dates: start: 20180105, end: 20180110
  63. IPRATROPIUM [Concomitant]
     Active Substance: IPRATROPIUM
     Dosage: 2 INHALATION DAILY
     Route: 050
     Dates: start: 20180118, end: 201801
  64. SPIRAMYCINE [Concomitant]
     Active Substance: SPIRAMYCIN
     Dosage: 3 TABLETS DAILY
     Route: 048
     Dates: start: 20180127
  65. BEVITINE [Concomitant]
     Active Substance: THIAMINE HYDROCHLORIDE
     Dosage: 2 TABLETS
     Route: 048
     Dates: start: 20180127, end: 20180127
  66. HYDROCORTISONE. [Concomitant]
     Active Substance: HYDROCORTISONE
     Route: 048
     Dates: start: 20180130, end: 20180326
  67. PLACEBO [Suspect]
     Active Substance: UNSPECIFIED INGREDIENT
     Indication: LUPUS NEPHRITIS
     Dosage: DATE OF MOST RECENT DOSE PRIOR TO AE ONSET: 06 MAR 2017 AT 11:30?DATE OF MOST RECENT DOSE PRIOR TO S
     Route: 042
     Dates: start: 20170217
  68. MYCOPHENOLATE MOFETIL. [Suspect]
     Active Substance: MYCOPHENOLATE MOFETIL
     Indication: LUPUS NEPHRITIS
     Dosage: DATE OF MOST RECENT DOSE PRIOR TO AE ONSET: 29 MAY 2017, 2000 MG?DATE OF MOST RECENT DOSE PRIOR TO S
     Route: 048
     Dates: start: 20170118
  69. NOVORAPID [Concomitant]
     Active Substance: INSULIN ASPART
     Route: 058
     Dates: start: 20170510, end: 20170608
  70. AMLODIPINE [Concomitant]
     Active Substance: AMLODIPINE BESYLATE
     Route: 048
     Dates: start: 20161212
  71. BISOCE [Concomitant]
     Active Substance: BISOPROLOL
     Route: 048
     Dates: start: 20161114, end: 20170730
  72. FUROSEMIDE. [Concomitant]
     Active Substance: FUROSEMIDE
     Route: 048
     Dates: start: 20170217, end: 20170607
  73. FUROSEMIDE. [Concomitant]
     Active Substance: FUROSEMIDE
     Route: 048
     Dates: start: 20170608, end: 20180125
  74. CORTANCYL [Concomitant]
     Active Substance: PREDNISONE
     Route: 048
     Dates: start: 20170523, end: 20170607
  75. VALSARTAN. [Concomitant]
     Active Substance: VALSARTAN
     Route: 048
     Dates: start: 20161212, end: 20170730
  76. AZATHIOPRINE. [Concomitant]
     Active Substance: AZATHIOPRINE
     Route: 048
     Dates: start: 20171118, end: 20180119
  77. COLCHICINE. [Concomitant]
     Active Substance: COLCHICINE
     Route: 048
     Dates: start: 201711, end: 20180322
  78. ZYLORIC [Concomitant]
     Active Substance: ALLOPURINOL
     Route: 048
     Dates: start: 20161121, end: 201707
  79. NOVORAPID [Concomitant]
     Active Substance: INSULIN ASPART
     Route: 058
     Dates: start: 20170717, end: 20171026
  80. CORTANCYL [Concomitant]
     Active Substance: PREDNISONE
     Route: 048
     Dates: start: 20170608, end: 20170730
  81. SMECTA [Concomitant]
     Active Substance: MONTMORILLONITE
     Route: 048
     Dates: start: 20170306, end: 201705
  82. ACLASTA [Concomitant]
     Active Substance: ZOLEDRONIC ACID
     Route: 042
     Dates: start: 201803
  83. BACTRIM [Concomitant]
     Active Substance: SULFAMETHOXAZOLE\TRIMETHOPRIM
     Route: 048
     Dates: start: 20170217, end: 20170810

REACTIONS (3)
  - Pyrexia [Recovered/Resolved]
  - Bronchiolitis [Recovered/Resolved]
  - Pyrexia [Recovered/Resolved]

NARRATIVE: CASE EVENT DATE: 20170530
